FAERS Safety Report 4932727-7 (Version None)
Quarter: 2006Q1

REPORT INFORMATION
  Report Type: 
  Country: None (occurrence: None)
  Receive Date: 20060301
  Receipt Date: 20060301
  Transmission Date: 20060701
  Serious: Yes (Hospitalization)
  Sender: FDA-Public Use
  Company Number: None

PATIENT
  Sex: Female
  Weight: 73.9 kg

DRUGS (2)
  1. RITUXIMAB    10MG/ML    GENETECH [Suspect]
     Indication: HIGH GRADE B-CELL LYMPHOMA BURKITT-LIKE LYMPHOMA
     Dosage: 600 MG  Q WEEK  IV
     Route: 042
     Dates: start: 20051215
  2. .. [Concomitant]

REACTIONS (5)
  - BONE MARROW DISORDER [None]
  - FALL [None]
  - FEMORAL NECK FRACTURE [None]
  - GAIT DISTURBANCE [None]
  - LYMPHOMA [None]
